FAERS Safety Report 4708335-X (Version None)
Quarter: 2005Q3

REPORT INFORMATION
  Report Type: 
  Country: None (occurrence: None)
  Receive Date: 20050705
  Receipt Date: 20050705
  Transmission Date: 20060218
  Serious: Yes (Other)
  Sender: FDA-Public Use
  Company Number: None

PATIENT
  Age: 9 Year
  Sex: Male
  Weight: 24.9478 kg

DRUGS (1)
  1. STRATTERA [Suspect]
     Indication: ATTENTION DEFICIT/HYPERACTIVITY DISORDER
     Dosage: PERLARICU
     Route: 052
     Dates: start: 19961201, end: 20050120

REACTIONS (4)
  - DEPRESSION [None]
  - MORBID THOUGHTS [None]
  - ORAL INTAKE REDUCED [None]
  - SUICIDAL IDEATION [None]
